FAERS Safety Report 9525208 (Version 2)
Quarter: 2014Q1

REPORT INFORMATION
  Report Type: Spontaneous
  Country: US (occurrence: None)
  Receive Date: 20130912
  Receipt Date: 20140103
  Transmission Date: 20141002
  Serious: Yes (Other)
  Sender: FDA-Public Use
  Company Number: JPI-P-034817

PATIENT
  Age: 81 Year
  Sex: Female
  Weight: 86.6 kg

DRUGS (2)
  1. XYREM [Suspect]
     Route: 048
     Dates: start: 200209
  2. MULTIPLE UNSPECIFIED MEDICATIONS [Concomitant]

REACTIONS (9)
  - Facial bones fracture [None]
  - Periorbital contusion [None]
  - Cataplexy [None]
  - Fall [None]
  - Tremor [None]
  - Convulsion [None]
  - Hallucinations, mixed [None]
  - Muscle spasms [None]
  - Joint injury [None]
